FAERS Safety Report 20244304 (Version 1)
Quarter: 2021Q4

REPORT INFORMATION
  Report Type: Report from Study
  Country: CA (occurrence: CA)
  Receive Date: 20211229
  Receipt Date: 20211229
  Transmission Date: 20220304
  Serious: Yes (Other)
  Sender: FDA-Public Use
  Company Number: CA-JNJFOC-20211252356

PATIENT
  Age: 64 Year
  Sex: Male
  Weight: 115.9 kg

DRUGS (1)
  1. REMICADE [Suspect]
     Active Substance: INFLIXIMAB
     Indication: Crohn^s disease
     Dosage: ON 11-NOV-21, LAST INFUSION TAKEN.
     Route: 042

REACTIONS (1)
  - Skin cancer [Unknown]
